FAERS Safety Report 9022121 (Version 1)
Quarter: 2013Q1

REPORT INFORMATION
  Report Type: Spontaneous
  Country: US (occurrence: US)
  Receive Date: 20130118
  Receipt Date: 20130118
  Transmission Date: 20140127
  Serious: Yes (Other)
  Sender: FDA-Public Use
  Company Number: US-BAYER-2013-006107

PATIENT
  Age: 34 Year
  Sex: Male
  Weight: 91 kg

DRUGS (3)
  1. ALKA-SELTZER PLUS COLD + COUGH [Suspect]
     Dosage: UNK
     Route: 048
  2. CORTICOSTEROIDS [Interacting]
  3. LORAZEPAM [Interacting]

REACTIONS (4)
  - Overdose [None]
  - Confusional state [Not Recovered/Not Resolved]
  - Memory impairment [Not Recovered/Not Resolved]
  - Drug interaction [None]
